FAERS Safety Report 8914290 (Version 1)
Quarter: 2012Q4

REPORT INFORMATION
  Report Type: 
  Country: CH (occurrence: CH)
  Receive Date: 20121119
  Receipt Date: 20121119
  Transmission Date: 20130627
  Serious: Yes (Other)
  Sender: FDA-Public Use
  Company Number: CH-ELI_LILLY_AND_COMPANY-CH201211001817

PATIENT
  Age: 57 Year
  Sex: Female

DRUGS (1)
  1. CYMBALTA [Suspect]
     Indication: DEPRESSION
     Dosage: 120 mg, qd

REACTIONS (2)
  - Bone marrow failure [Not Recovered/Not Resolved]
  - Hodgkin^s disease [Unknown]
